FAERS Safety Report 5109391-X (Version None)
Quarter: 2006Q3

REPORT INFORMATION
  Report Type: 
  Country: None (occurrence: None)
  Receive Date: 20060918
  Receipt Date: 20060901
  Transmission Date: 20061208
  Serious: Yes (Death, Hospitalization)
  Sender: FDA-Public Use
  Company Number: 229884

PATIENT
  Age: 59 Year

DRUGS (3)
  1. AVASTIN [Suspect]
     Indication: ADENOCARCINOMA PANCREAS
     Dosage: 10 MG/KG, DAYS 1 + 15, INTRAVENOUS
     Route: 042
  2. ERLOTINIB (ERLOTINIB) TABLET, 150MG [Suspect]
     Indication: ADENOCARCINOMA PANCREAS
     Dosage: 150 MG, QD, ORAL
     Route: 048
  3. GEMCITABINE [Suspect]
     Indication: ADENOCARCINOMA PANCREAS
     Dosage: 1000 MG/M2, DAYS 1,8,15, INTRAVENOUS
     Route: 042

REACTIONS (5)
  - DEHYDRATION [None]
  - HYPOTENSION [None]
  - PULMONARY EMBOLISM [None]
  - SUDDEN DEATH [None]
  - SYNCOPE [None]
